FAERS Safety Report 17892502 (Version 1)
Quarter: 2020Q2

REPORT INFORMATION
  Report Type: Spontaneous
  Country: PL (occurrence: PL)
  Receive Date: 20200613
  Receipt Date: 20200613
  Transmission Date: 20200714
  Serious: Yes (Death, Life-Threatening, Hospitalization, Other)
  Sender: FDA-Public Use
  Company Number: PL-AUROBINDO-AUR-APL-2020-028748

PATIENT
  Age: 68 Year
  Sex: Male

DRUGS (6)
  1. EPINEPHRINE. [Suspect]
     Active Substance: EPINEPHRINE
     Indication: POST PROCEDURAL HAEMORRHAGE
     Dosage: UNK, INCREASING DOSES
     Route: 042
  2. NOREPINEPHRINE. [Suspect]
     Active Substance: NOREPINEPHRINE
     Indication: POST PROCEDURAL HAEMORRHAGE
     Dosage: INCREASING DOSES
     Route: 042
  3. PROTAMINE [Suspect]
     Active Substance: PROTAMINE
     Indication: POST PROCEDURAL HAEMORRHAGE
     Dosage: UNK
     Route: 065
  4. ACETYLSALICYLIC ACID [Suspect]
     Active Substance: ASPIRIN
     Indication: ACUTE CORONARY SYNDROME
     Dosage: 300 MILLIGRAM, TOTAL
     Route: 065
     Dates: start: 20160812
  5. DABIGATRAN [Suspect]
     Active Substance: DABIGATRAN
     Indication: ATRIAL FIBRILLATION
     Dosage: 150 MILLIGRAM, TOTAL
     Route: 065
     Dates: start: 20160812
  6. CLOPIDOGREL [Suspect]
     Active Substance: CLOPIDOGREL BISULFATE
     Indication: ACUTE CORONARY SYNDROME
     Dosage: 600 MILLIGRAM, TOTAL
     Route: 065
     Dates: start: 20160812

REACTIONS (2)
  - Drug ineffective [Fatal]
  - Post procedural haemorrhage [Fatal]
